FAERS Safety Report 9216492 (Version 1)
Quarter: 2013Q2

REPORT INFORMATION
  Report Type: Spontaneous
  Country: US (occurrence: None)
  Receive Date: 20130402
  Receipt Date: 20130402
  Transmission Date: 20140414
  Serious: Yes (Life-Threatening, Hospitalization)
  Sender: FDA-Public Use
  Company Number: AE13-028 15 DAY REPORT

PATIENT
  Age: 22 Year
  Sex: Male

DRUGS (1)
  1. HYDROCODONE BITARTRATE/ACETAMINOPHEN [Suspect]
     Dosage: OVERDOSE

REACTIONS (6)
  - Suicide attempt [None]
  - Intentional overdose [None]
  - Aspartate aminotransferase increased [None]
  - Alanine aminotransferase increased [None]
  - Abdominal pain [None]
  - Nausea [None]
